FAERS Safety Report 5230082-9 (Version None)
Quarter: 2007Q1

REPORT INFORMATION
  Report Type: 
  Country: None (occurrence: None)
  Receive Date: 20070206
  Receipt Date: 20060627
  Transmission Date: 20070707
  Serious: No
  Sender: FDA-Public Use
  Company Number: US-GLAXOSMITHKLINE-A0579895A

PATIENT
  Sex: Female

DRUGS (9)
  1. PAXIL CR [Suspect]
     Indication: DEPRESSION
     Dosage: 50MG PER DAY
     Route: 048
  2. PAROXETINE HYDROCHLORIDE [Suspect]
     Indication: DEPRESSION
     Route: 048
  3. KLONOPIN [Concomitant]
  4. ACTOS [Concomitant]
  5. PRILOSEC [Concomitant]
  6. LIPITOR [Concomitant]
  7. GLYBURIDE [Concomitant]
  8. BACLOFEN [Concomitant]
  9. THYROID TAB [Concomitant]

REACTIONS (4)
  - CRYING [None]
  - DRUG INEFFECTIVE [None]
  - PANIC ATTACK [None]
  - SOCIAL PHOBIA [None]
